FAERS Safety Report 4892727-2 (Version None)
Quarter: 2006Q1

REPORT INFORMATION
  Report Type: 
  Country: None (occurrence: None)
  Receive Date: 20060125
  Receipt Date: 20060125
  Transmission Date: 20060701
  Serious: Yes (Hospitalization)
  Sender: FDA-Public Use
  Company Number: None

PATIENT
  Age: 40 Year
  Sex: Male
  Weight: 67 kg

DRUGS (7)
  1. RITUXIMAB [Suspect]
     Indication: WALDENSTROM'S MACROGLOBULINAEMIA
     Dosage: 100MG,  QWEEK,  IV
     Route: 042
     Dates: start: 20051017
  2. LAMIVUDINE [Concomitant]
  3. VALTREX [Concomitant]
  4. BACTRIM DS [Concomitant]
  5. CYTOXAN [Concomitant]
  6. FLUDARABINE [Concomitant]
  7. VAD [Concomitant]

REACTIONS (9)
  - BODY TEMPERATURE INCREASED [None]
  - CHILLS [None]
  - HEART RATE INCREASED [None]
  - INFUSION RELATED REACTION [None]
  - NO REACTION ON PREVIOUS EXPOSURE TO DRUG [None]
  - PYREXIA [None]
  - RESPIRATORY RATE INCREASED [None]
  - TACHYCARDIA [None]
  - TACHYPNOEA [None]
